FAERS Safety Report 24592572 (Version 1)
Quarter: 2024Q4

REPORT INFORMATION
  Report Type: Report from Study
  Country: US (occurrence: US)
  Receive Date: 20241108
  Receipt Date: 20241108
  Transmission Date: 20250115
  Serious: Yes (Hospitalization)
  Sender: TAKEDA
  Company Number: US-TAKEDA-2023TUS019138

PATIENT
  Sex: Female

DRUGS (12)
  1. TEDUGLUTIDE [Suspect]
     Active Substance: TEDUGLUTIDE
     Indication: Illness
     Dosage: 0.31 MILLILITER, QD
     Route: 058
     Dates: start: 20230118
  2. TEDUGLUTIDE [Suspect]
     Active Substance: TEDUGLUTIDE
     Indication: Illness
     Dosage: 0.31 MILLILITER, QD
     Route: 058
     Dates: start: 20230118
  3. TEDUGLUTIDE [Suspect]
     Active Substance: TEDUGLUTIDE
     Indication: Illness
     Dosage: 0.31 MILLILITER, QD
     Route: 058
     Dates: start: 20230118
  4. TEDUGLUTIDE [Suspect]
     Active Substance: TEDUGLUTIDE
     Indication: Illness
     Dosage: 0.31 MILLILITER, QD
     Route: 058
     Dates: start: 20230118
  5. TEDUGLUTIDE [Suspect]
     Active Substance: TEDUGLUTIDE
     Indication: Short-bowel syndrome
     Dosage: 0.31 MILLILITER, QD
     Route: 058
     Dates: start: 20230124
  6. TEDUGLUTIDE [Suspect]
     Active Substance: TEDUGLUTIDE
     Indication: Short-bowel syndrome
     Dosage: 0.31 MILLILITER, QD
     Route: 058
     Dates: start: 20230124
  7. TEDUGLUTIDE [Suspect]
     Active Substance: TEDUGLUTIDE
     Indication: Short-bowel syndrome
     Dosage: 0.31 MILLILITER, QD
     Route: 058
     Dates: start: 20230124
  8. TEDUGLUTIDE [Suspect]
     Active Substance: TEDUGLUTIDE
     Indication: Short-bowel syndrome
     Dosage: 0.31 MILLILITER, QD
     Route: 058
     Dates: start: 20230124
  9. TEDUGLUTIDE [Suspect]
     Active Substance: TEDUGLUTIDE
     Dosage: 0.31 MILLILITER, QD
     Route: 058
     Dates: start: 202301
  10. TEDUGLUTIDE [Suspect]
     Active Substance: TEDUGLUTIDE
     Dosage: 0.31 MILLILITER, QD
     Route: 058
     Dates: start: 202301
  11. TEDUGLUTIDE [Suspect]
     Active Substance: TEDUGLUTIDE
     Dosage: 0.31 MILLILITER, QD
     Route: 058
     Dates: start: 202301
  12. TEDUGLUTIDE [Suspect]
     Active Substance: TEDUGLUTIDE
     Dosage: 0.31 MILLILITER, QD
     Route: 058
     Dates: start: 202301

REACTIONS (8)
  - Hospitalisation [Unknown]
  - Stoma site discomfort [Unknown]
  - Stoma site erythema [Unknown]
  - Stoma site pain [Unknown]
  - Insurance issue [Unknown]
  - Flatulence [Unknown]
  - Abdominal distension [Unknown]
  - Abdominal pain [Unknown]
